FAERS Safety Report 7550038-0 (Version None)
Quarter: 2011Q2

REPORT INFORMATION
  Report Type: 
  Country: None (occurrence: None)
  Receive Date: 20110615
  Receipt Date: 20110613
  Transmission Date: 20111010
  Serious: Yes (Other)
  Sender: FDA-Public Use
  Company Number: JP-PFIZER INC-2011114456

PATIENT
  Age: 60 Year
  Sex: Female

DRUGS (8)
  1. KEISHIBUKURYOUGAN [Concomitant]
     Indication: PAIN
     Dosage: 7.5 G/DAY
     Route: 048
     Dates: start: 20091225
  2. SELTOUCH [Concomitant]
     Indication: BACK PAIN
     Dosage: UNK
     Route: 061
  3. LYRICA [Suspect]
     Indication: NEURALGIA
     Dosage: 75 MG, 2X/DAY
     Route: 048
     Dates: start: 20110205
  4. ALPRAZOLAM [Suspect]
     Indication: INSOMNIA
  5. ZOLPIDEM [Suspect]
     Indication: INSOMNIA
     Dosage: 10 MG, 1X/DAY
     Route: 048
     Dates: start: 20100830
  6. ALPRAZOLAM [Suspect]
     Indication: ANXIETY
     Dosage: 0.4 MG, 1X/DAY
     Route: 048
     Dates: start: 20070126
  7. REBAMIPIDE [Concomitant]
     Indication: GASTRIC DISORDER
     Dosage: 100 MG, UNK
     Route: 048
     Dates: start: 20100522
  8. KEISHIBUKURYOUGAN [Concomitant]
     Indication: OEDEMA

REACTIONS (4)
  - LOSS OF CONSCIOUSNESS [None]
  - FACIAL BONES FRACTURE [None]
  - ROAD TRAFFIC ACCIDENT [None]
  - CONTUSION [None]
